FAERS Safety Report 9952764 (Version 1)
Quarter: 2014Q1

REPORT INFORMATION
  Report Type: Report from Study
  Country: US (occurrence: US)
  Receive Date: 20140304
  Receipt Date: 20140304
  Transmission Date: 20141002
  Serious: No
  Sender: FDA-Public Use
  Company Number: US-ABBVIE-13P-163-1078878-00

PATIENT
  Age: 44 Year
  Sex: Male

DRUGS (5)
  1. HUMIRA [Suspect]
     Indication: RHEUMATOID ARTHRITIS
  2. PREDNISONE [Concomitant]
     Indication: RHEUMATOID ARTHRITIS
     Dosage: 20 MG DAILY
     Route: 048
  3. PLAQUENIL [Concomitant]
     Indication: RHEUMATOID ARTHRITIS
     Dosage: 200 MG DAILY
     Route: 048
  4. TOPAMAX [Concomitant]
     Indication: MENIERE^S DISEASE
     Dosage: 25 MG DAILY
     Route: 048
  5. TOPAMAX [Concomitant]
     Indication: MIGRAINE

REACTIONS (1)
  - Rash macular [Not Recovered/Not Resolved]
